FAERS Safety Report 11416026 (Version 1)
Quarter: 2015Q3

REPORT INFORMATION
  Report Type: Spontaneous
  Country: US (occurrence: None)
  Receive Date: 20150824
  Receipt Date: 20150824
  Transmission Date: 20151125
  Serious: No
  Sender: FDA-Public Use
  Company Number: None

PATIENT
  Age: 55 Year
  Sex: Female

DRUGS (1)
  1. COPAXONE [Suspect]
     Active Substance: GLATIRAMER ACETATE
     Indication: MULTIPLE SCLEROSIS
     Route: 058
     Dates: start: 20150624, end: 20150630

REACTIONS (7)
  - Asthenia [None]
  - Musculoskeletal stiffness [None]
  - Tremor [None]
  - Chills [None]
  - Nausea [None]
  - Vomiting [None]
  - Pyrexia [None]

NARRATIVE: CASE EVENT DATE: 20150630
